FAERS Safety Report 4871899-X (Version None)
Quarter: 2006Q1

REPORT INFORMATION
  Report Type: 
  Country: None (occurrence: None)
  Receive Date: 20060104
  Receipt Date: 20051230
  Transmission Date: 20060701
  Serious: Yes (Hospitalization)
  Sender: FDA-Public Use
  Company Number: 2006UW00014

PATIENT
  Age: 66 Year
  Sex: Male
  Weight: 83.9 kg

DRUGS (1)
  1. TOPROL-XL [Suspect]
     Indication: HYPERTENSION
     Route: 048

REACTIONS (5)
  - BLOOD PRESSURE INCREASED [None]
  - EXTRASYSTOLES [None]
  - HEART RATE INCREASED [None]
  - OEDEMA PERIPHERAL [None]
  - THROMBOSIS [None]
